FAERS Safety Report 8798137 (Version 1)
Quarter: 2012Q4

REPORT INFORMATION
  Report Type: Spontaneous
  Country: US (occurrence: None)
  Receive Date: 20120913
  Receipt Date: 20120913
  Transmission Date: 20130627
  Serious: Yes (Death)
  Sender: FDA-Public Use
  Company Number: 1713747-2012-00004

PATIENT
  Sex: Male
  Weight: 129.28 kg

DRUGS (22)
  1. DELFLEX WITH DEXTROSE 4.25% [Suspect]
     Dosage: 12, 500mL/tx, Daily, IP
     Route: 033
     Dates: start: 20100323, end: 20120803
  2. DELFLEX [Concomitant]
  3. FRESNIUS LIBERTY CYCLER [Concomitant]
  4. LIBERTY CYCLER SET [Concomitant]
  5. ALLEGRA [Concomitant]
  6. ASA [Concomitant]
  7. COUMADIN [Concomitant]
  8. CRESTOR [Concomitant]
  9. DULCOLAX [Concomitant]
  10. HUMALOG [Concomitant]
  11. HUMULIN [Concomitant]
  12. LEVEMIR [Concomitant]
  13. LORTAB [Concomitant]
  14. METOPROLOL [Concomitant]
  15. MIRALAX [Concomitant]
  16. NEURIONTIN [Concomitant]
  17. PHOSLO [Concomitant]
  18. PRILOSEC [Concomitant]
  19. PROMETHAZINE [Concomitant]
  20. SENSIPAR [Concomitant]
  21. SORBITOL [Concomitant]
  22. STARLIX [Concomitant]

REACTIONS (2)
  - Respiratory arrest [None]
  - Sudden death [None]
